FAERS Safety Report 9504606 (Version 1)
Quarter: 2013Q3

REPORT INFORMATION
  Report Type: Report from Study
  Country: US (occurrence: US)
  Receive Date: 20130906
  Receipt Date: 20130906
  Transmission Date: 20140515
  Serious: Yes (Hospitalization)
  Sender: FDA-Public Use
  Company Number: US-TAKEDA-2013TUS000107

PATIENT
  Age: 73 Year
  Sex: Male
  Weight: 84.4 kg

DRUGS (10)
  1. BLINDED ALLOPURINOL [Suspect]
     Indication: HYPERURICAEMIA
     Dosage: UNK, QD
     Route: 048
     Dates: start: 20100907
  2. BLINDED FEBUXOSTAT [Suspect]
     Indication: HYPERURICAEMIA
     Dosage: UNK, QD
     Route: 048
     Dates: start: 20100907
  3. FOLIC ACID [Concomitant]
     Indication: SUPPLEMENTATION THERAPY
     Dosage: 1 MG, QD
     Route: 048
     Dates: start: 2005
  4. MULTIVITAMIN                       /00831701/ [Concomitant]
     Indication: SUPPLEMENTATION THERAPY
     Dosage: 1 DF, QD
     Route: 048
     Dates: start: 2007
  5. OMEPRAZOLE [Concomitant]
     Indication: GASTROOESOPHAGEAL REFLUX DISEASE
     Dosage: 20 MG, QD
     Route: 048
     Dates: start: 2005
  6. ALFUZOSIN [Concomitant]
     Indication: BENIGN PROSTATIC HYPERPLASIA
     Dosage: 10 MG, QD
     Route: 048
     Dates: start: 2007
  7. LORTAB 5/10                            /00607101/ [Concomitant]
     Indication: ARTHRALGIA
     Dosage: 1 DF, UNK
     Route: 048
     Dates: start: 20110825
  8. AMLODIPINE BESYLATE [Concomitant]
     Indication: HYPERTENSION
     Dosage: 5 MG, QD
     Route: 048
     Dates: start: 20120814
  9. FENOFIBRATE [Concomitant]
     Indication: HYPERLIPIDAEMIA
     Dosage: 160 MG, QD
     Route: 048
     Dates: start: 20120501
  10. TOPICORTE 0.25% [Concomitant]
     Indication: DERMATITIS
     Dosage: 1 APPLICATION
     Route: 061
     Dates: start: 20100316

REACTIONS (1)
  - Intervertebral disc protrusion [Recovered/Resolved]
